FAERS Safety Report 18925066 (Version 2)
Quarter: 2021Q1

REPORT INFORMATION
  Report Type: Spontaneous
  Country: CN (occurrence: CN)
  Receive Date: 20210222
  Receipt Date: 20210225
  Transmission Date: 20210420
  Serious: Yes (Hospitalization)
  Sender: FDA-Public Use
  Company Number: CN-PFIZER INC-2021154347

PATIENT
  Age: 21 Year
  Sex: Male
  Weight: 75 kg

DRUGS (7)
  1. CYTOSAR [Suspect]
     Active Substance: CYTARABINE
     Indication: SYMPTOMATIC TREATMENT
     Dosage: 180 MG, 1X/DAY
     Route: 041
     Dates: start: 20210126, end: 20210201
  2. MERCAPTOPURINE. [Concomitant]
     Active Substance: MERCAPTOPURINE
     Indication: ACUTE LYMPHOCYTIC LEUKAEMIA
     Dosage: 100 MG/D, PO, QN
     Route: 048
     Dates: start: 20210206
  3. MESNA. [Concomitant]
     Active Substance: MESNA
     Dosage: 0.8 G AT 0, 4 AND 8 HOURS AFTER CYCLOPHOSPHAMIDE
     Dates: start: 20210202, end: 20210202
  4. ENDOXAN [Suspect]
     Active Substance: CYCLOPHOSPHAMIDE
     Indication: ACUTE LYMPHOCYTIC LEUKAEMIA
     Dosage: 1.4 G, 1X/DAY
     Route: 041
     Dates: start: 20210202, end: 20210202
  5. CYTOSAR [Suspect]
     Active Substance: CYTARABINE
     Indication: ACUTE LYMPHOCYTIC LEUKAEMIA
  6. ENDOXAN [Suspect]
     Active Substance: CYCLOPHOSPHAMIDE
     Indication: SYMPTOMATIC TREATMENT
     Dosage: 1.4 G, 1X/DAY
     Route: 041
     Dates: start: 20210126, end: 20210126
  7. MESNA. [Concomitant]
     Active Substance: MESNA
     Dosage: 0.8 G AT 0, 4 AND 8 HOURS AFTER CYCLOPHOSPHAMIDE
     Dates: start: 20210126, end: 20210126

REACTIONS (5)
  - Haematochezia [Unknown]
  - Haemoglobin decreased [Unknown]
  - Red blood cell count decreased [Unknown]
  - White blood cell count decreased [Unknown]
  - Platelet count decreased [Not Recovered/Not Resolved]

NARRATIVE: CASE EVENT DATE: 20210202
